FAERS Safety Report 15946578 (Version 1)
Quarter: 2019Q1

REPORT INFORMATION
  Report Type: Report from Study
  Country: ES (occurrence: ES)
  Receive Date: 20190211
  Receipt Date: 20190211
  Transmission Date: 20190417
  Serious: Yes (Other)
  Sender: FDA-Public Use
  Company Number: ES-TEVA-2019-ES-1009380

PATIENT

DRUGS (2)
  1. RESLIZUMAB [Suspect]
     Active Substance: RESLIZUMAB
     Indication: ASTHMA
     Dosage: 3 MG/KG INTRAVENOUSLY EVERY 4 WEEKS
     Route: 042
  2. PREDNISONE. [Concomitant]
     Active Substance: PREDNISONE

REACTIONS (1)
  - Toxic skin eruption [Recovered/Resolved]
